FAERS Safety Report 7293501-2 (Version None)
Quarter: 2011Q1

REPORT INFORMATION
  Report Type: 
  Country: None (occurrence: None)
  Receive Date: 20110215
  Receipt Date: 20110208
  Transmission Date: 20110831
  Serious: Yes (Hospitalization, Other)
  Sender: FDA-Public Use
  Company Number: BR-ABBOTT-11P-020-0703768-00

PATIENT
  Sex: Female
  Weight: 74 kg

DRUGS (3)
  1. HUMIRA [Suspect]
     Indication: CROHN'S DISEASE
     Dosage: LOADING DOSE 160MG/EVERY 15 DAYS
     Route: 058
     Dates: start: 20100801, end: 20110101
  2. RIVOTRIL [Concomitant]
     Indication: SLEEP DISORDER THERAPY
     Route: 048
     Dates: start: 20101001
  3. HUMIRA [Suspect]
     Route: 058
     Dates: start: 20110101

REACTIONS (3)
  - NERVOUSNESS [None]
  - DEPRESSION [None]
  - INTESTINAL STENOSIS [None]
